FAERS Safety Report 10500772 (Version 1)
Quarter: 2014Q4

REPORT INFORMATION
  Report Type: Spontaneous
  Country: BR (occurrence: BR)
  Receive Date: 20141007
  Receipt Date: 20141007
  Transmission Date: 20150528
  Serious: Yes (Other)
  Sender: FDA-Public Use
  Company Number: BR-ACCORD-026237

PATIENT
  Age: 61 Year
  Sex: Male
  Weight: 96.8 kg

DRUGS (5)
  1. DEXAMETHASONE. [Concomitant]
     Active Substance: DEXAMETHASONE
     Indication: PROPHYLAXIS
     Dosage: SF 100 ML + DEXAMETASONE
     Route: 042
     Dates: start: 20140912, end: 20140912
  2. RANITIDINE [Concomitant]
     Active Substance: RANITIDINE\RANITIDINE HYDROCHLORIDE
     Indication: PROPHYLAXIS
     Dosage: 50 MG /2ML
     Route: 042
     Dates: start: 20140912, end: 20140912
  3. DIFENIDRIN [Concomitant]
     Active Substance: DIPHENHYDRAMINE
     Indication: PROPHYLAXIS
     Dosage: SF 100ML + DIFENIDRIN: 50 MG/ML
     Route: 042
     Dates: start: 20140912, end: 20140912
  4. PACLITAXEL/PACLITAXEL LIPOSOME [Suspect]
     Active Substance: PACLITAXEL
     Indication: MALIGNANT PALATE NEOPLASM
     Dosage: 3RD CYCLE
     Route: 042
     Dates: start: 20140912, end: 20140912
  5. ONDANSETRON [Concomitant]
     Active Substance: ONDANSETRON
     Indication: PROPHYLAXIS
     Dosage: 8 MG/ 4 ML
     Route: 042
     Dates: start: 20140912, end: 20140912

REACTIONS (6)
  - Chest pain [Recovered/Resolved]
  - Hypertension [Recovered/Resolved]
  - Bradycardia [Recovered/Resolved]
  - Suffocation feeling [Recovered/Resolved]
  - Off label use [Unknown]
  - Pain in extremity [None]

NARRATIVE: CASE EVENT DATE: 20140912
